FAERS Safety Report 20306899 (Version 1)
Quarter: 2022Q1

REPORT INFORMATION
  Report Type: Spontaneous
  Country: GB (occurrence: GB)
  Receive Date: 20220106
  Receipt Date: 20220106
  Transmission Date: 20220423
  Serious: No
  Sender: FDA-Public Use
  Company Number: None

PATIENT
  Age: 62 Year
  Sex: Female
  Weight: 88 kg

DRUGS (7)
  1. IBUPROFEN [Suspect]
     Active Substance: IBUPROFEN
     Indication: Product used for unknown indication
     Dosage: 200 MILLIGRAM
     Route: 065
     Dates: start: 20201116
  2. IBUPROFEN [Suspect]
     Active Substance: IBUPROFEN
     Dosage: 300 MILLIGRAM
     Route: 065
     Dates: start: 20211001
  3. ATORVASTATIN [Concomitant]
     Active Substance: ATORVASTATIN
     Indication: Hypercholesterolaemia
     Dosage: 1 DOSAGE FORM, QD (EVERY 1 DAY)
     Route: 065
     Dates: start: 20201125
  4. COCODAMOL [Concomitant]
     Active Substance: ACETAMINOPHEN\CODEINE PHOSPHATE
     Indication: Product used for unknown indication
     Dosage: ONE OR TWO TO BE TAKEN FOUR TIMES A DAY WHEN RE...
     Route: 065
     Dates: start: 20180504, end: 20201112
  5. INDAPAMIDE [Concomitant]
     Active Substance: INDAPAMIDE
     Indication: Blood pressure management
     Dosage: 1 DOSAGE FORM, QD (EVERY 1 DAY)
     Route: 065
     Dates: start: 20201125
  6. PANTOPRAZOLE [Concomitant]
     Active Substance: PANTOPRAZOLE
     Indication: Product used for unknown indication
     Dosage: 1 DOSAGE FORM, QD (EVERY 1 DAY)
     Route: 065
     Dates: start: 20201116
  7. RAMIPRIL [Concomitant]
     Active Substance: RAMIPRIL
     Indication: Blood pressure management
     Dosage: 1 DOSAGE FORM, QD (EVERY 1 DAY)
     Route: 065
     Dates: start: 20201125

REACTIONS (4)
  - Lip swelling [Unknown]
  - Urticaria [Unknown]
  - Gastrooesophageal reflux disease [Unknown]
  - Dyspepsia [Recovered/Resolved]

NARRATIVE: CASE EVENT DATE: 20201216
